FAERS Safety Report 4556611-6 (Version None)
Quarter: 2005Q1

REPORT INFORMATION
  Report Type: 
  Country: None (occurrence: None)
  Receive Date: 20050118
  Receipt Date: 20050110
  Transmission Date: 20050727
  Serious: Yes (Other)
  Sender: FDA-Public Use
  Company Number: 2005009383

PATIENT
  Age: 51 Year
  Sex: Male
  Weight: 76.2043 kg

DRUGS (3)
  1. LINEZOLID TABLET (LINEZOLID) [Suspect]
     Indication: STAPHYLOCOCCAL INFECTION
     Dosage: 1200 MG (600 MG, BID INTERVAL : TWICE DAILY),  ORAL : 1200 MG (600 MG, BID) ORAL
     Route: 048
     Dates: start: 20041105, end: 20041122
  2. LINEZOLID TABLET (LINEZOLID) [Suspect]
     Indication: STAPHYLOCOCCAL INFECTION
     Dosage: 1200 MG (600 MG, BID INTERVAL : TWICE DAILY),  ORAL : 1200 MG (600 MG, BID) ORAL
     Route: 048
     Dates: start: 20041124, end: 20050105
  3. LIPITOR [Concomitant]

REACTIONS (7)
  - ANAEMIA [None]
  - BREAST OEDEMA [None]
  - BREAST TENDERNESS [None]
  - PYREXIA [None]
  - SURGERY [None]
  - TONGUE DISCOLOURATION [None]
  - TOOTH DISCOLOURATION [None]
